FAERS Safety Report 6016682-7 (Version None)
Quarter: 2008Q4

REPORT INFORMATION
  Report Type: 
  Country: None (occurrence: None)
  Receive Date: 20081222
  Receipt Date: 20081210
  Transmission Date: 20090506
  Serious: Yes (Other)
  Sender: FDA-Public Use
  Company Number: AU-ASTRAZENECA-2008AP09591

PATIENT
  Age: 11 Year
  Sex: Female

DRUGS (2)
  1. SYMBICORT [Suspect]
     Dosage: MAINTENANCE THERAPY
     Route: 055
  2. RHINOCORT [Suspect]
     Route: 045
     Dates: start: 20081210

REACTIONS (4)
  - ABDOMINAL PAIN UPPER [None]
  - DIZZINESS [None]
  - HEART RATE INCREASED [None]
  - TREMOR [None]
